FAERS Safety Report 13593203 (Version 1)
Quarter: 2017Q2

REPORT INFORMATION
  Report Type: Spontaneous
  Country: US (occurrence: US)
  Receive Date: 20170530
  Receipt Date: 20170530
  Transmission Date: 20170830
  Serious: Yes (Other)
  Sender: FDA-Public Use
  Company Number: US-PFIZER INC-2016009487

PATIENT
  Age: 68 Year
  Sex: Male
  Weight: 102.9 kg

DRUGS (1)
  1. XALKORI [Suspect]
     Active Substance: CRIZOTINIB
     Indication: NON-SMALL CELL LUNG CANCER
     Dosage: 250 MG, 2X/DAY
     Route: 048
     Dates: start: 20170104

REACTIONS (6)
  - Hypoaesthesia [Not Recovered/Not Resolved]
  - Neoplasm progression [Not Recovered/Not Resolved]
  - Back pain [Unknown]
  - Visual impairment [Not Recovered/Not Resolved]
  - Muscle strain [Not Recovered/Not Resolved]
  - Nerve compression [Unknown]

NARRATIVE: CASE EVENT DATE: 20170426
